FAERS Safety Report 6274123-9 (Version None)
Quarter: 2009Q3

REPORT INFORMATION
  Report Type: 
  Country: None (occurrence: None)
  Receive Date: 20090720
  Receipt Date: 20090715
  Transmission Date: 20100115
  Serious: Yes (Death, Other)
  Sender: FDA-Public Use
  Company Number: PHHY2009RU28907

PATIENT

DRUGS (3)
  1. FEMARA [Suspect]
     Dosage: 2.5 MG/DAY
     Dates: start: 20090421
  2. DOXORUBICIN HCL [Concomitant]
     Dosage: 1080 MG, UNK
  3. RADIOTHERAPY [Concomitant]

REACTIONS (6)
  - ASTHENIA [None]
  - CARDIOMYOPATHY [None]
  - DEATH [None]
  - DECREASED APPETITE [None]
  - GENERAL PHYSICAL HEALTH DETERIORATION [None]
  - THROAT LESION [None]
